FAERS Safety Report 7618146-3 (Version None)
Quarter: 2011Q3

REPORT INFORMATION
  Report Type: 
  Country: None (occurrence: None)
  Receive Date: 20110718
  Receipt Date: 20110623
  Transmission Date: 20111222
  Serious: Yes (Death, Hospitalization)
  Sender: FDA-Public Use
  Company Number: US-GLAXOSMITHKLINE-A0806595A

PATIENT
  Age: 73 Year
  Sex: Female

DRUGS (1)
  1. AVANDIA [Suspect]
     Indication: TYPE 2 DIABETES MELLITUS
     Dosage: 4MG UNKNOWN
     Route: 065
     Dates: start: 20040101, end: 20060609

REACTIONS (5)
  - CORONARY ARTERY DISEASE [None]
  - CARDIAC ARREST [None]
  - MYOCARDIAL INFARCTION [None]
  - CARDIAC FAILURE [None]
  - CARDIAC DISORDER [None]
